FAERS Safety Report 7360246-X (Version None)
Quarter: 2011Q1

REPORT INFORMATION
  Report Type: 
  Country: None (occurrence: None)
  Receive Date: 20110310
  Receipt Date: 20110226
  Transmission Date: 20110831
  Serious: Yes (Other)
  Sender: FDA-Public Use
  Company Number: US-1185198

PATIENT
  Sex: Male

DRUGS (2)
  1. DIFLUPREDNATE 0.05 % OPHTHALMIC EMULSION [Suspect]
     Indication: POSTOPERATIVE CARE
     Dosage: (OPHTHALMIC)
     Route: 047
  2. SALICYLIC ACID (NONE) [Suspect]

REACTIONS (2)
  - DRUG DISPENSING ERROR [None]
  - INJURY [None]
